FAERS Safety Report 7444989-5 (Version None)
Quarter: 2011Q2

REPORT INFORMATION
  Report Type: 
  Country: None (occurrence: None)
  Receive Date: 20110429
  Receipt Date: 20110420
  Transmission Date: 20111010
  Serious: Yes (Other)
  Sender: FDA-Public Use
  Company Number: GB-BRISTOL-MYERS SQUIBB COMPANY-15706328

PATIENT
  Age: 28 Year
  Sex: Male

DRUGS (2)
  1. ATAZANAVIR CAPS [Suspect]
     Dosage: NOV-DEC05
     Dates: start: 20081201, end: 20090301
  2. TRUVADA [Suspect]
     Dosage: NOV-DEC05,DEC05-MAR06,MAR06-MAY06,NOV06-JAN07,NOV08,DEC08-MAR09
     Dates: start: 20081201, end: 20090301

REACTIONS (6)
  - VIRAL LOAD INCREASED [None]
  - DECREASED APPETITE [None]
  - SKIN INFECTION [None]
  - DIARRHOEA [None]
  - PNEUMONIA [None]
  - WEIGHT DECREASED [None]
